FAERS Safety Report 20618339 (Version 1)
Quarter: 2022Q1

REPORT INFORMATION
  Report Type: Spontaneous
  Country: US (occurrence: US)
  Receive Date: 20220321
  Receipt Date: 20220321
  Transmission Date: 20220423
  Serious: Yes (Other)
  Sender: FDA-Public Use
  Company Number: US-LUNDBECK-DKLU3045840

PATIENT
  Age: 12 Year
  Sex: Female

DRUGS (2)
  1. SABRIL [Suspect]
     Active Substance: VIGABATRIN
     Indication: Idiopathic generalised epilepsy
     Route: 048
     Dates: start: 20170803
  2. SABRIL [Suspect]
     Active Substance: VIGABATRIN
     Indication: Epilepsy

REACTIONS (1)
  - Vision blurred [Not Recovered/Not Resolved]
